FAERS Safety Report 4433601-5 (Version None)
Quarter: 2004Q3

REPORT INFORMATION
  Report Type: 
  Country: None (occurrence: None)
  Receive Date: 20040824
  Receipt Date: 20040816
  Transmission Date: 20050211
  Serious: Yes (Disabling)
  Sender: FDA-Public Use
  Company Number: 20040800366

PATIENT
  Age: 20 Year
  Sex: Female

DRUGS (1)
  1. INFUMORPH/DURAMORPH (BAXTER) [Suspect]
     Indication: PAIN
     Dates: start: 20020401

REACTIONS (3)
  - ACCIDENTAL OVERDOSE [None]
  - INJURY [None]
  - MEDICATION ERROR [None]
